FAERS Safety Report 5733077-1 (Version None)
Quarter: 2008Q2

REPORT INFORMATION
  Report Type: 
  Country: None (occurrence: None)
  Receive Date: 20080509
  Receipt Date: 20080505
  Transmission Date: 20081010
  Serious: Yes (Life-Threatening, Other)
  Sender: FDA-Public Use
  Company Number: FR-BRISTOL-MYERS SQUIBB COMPANY-14176754

PATIENT
  Age: 45 Year
  Sex: Male

DRUGS (4)
  1. REYATAZ [Suspect]
     Indication: ANTIRETROVIRAL THERAPY
     Dates: start: 20080221, end: 20080311
  2. VIREAD [Suspect]
     Indication: ANTIRETROVIRAL THERAPY
     Dates: start: 20080221, end: 20080311
  3. NORVIR [Suspect]
     Indication: ANTIRETROVIRAL THERAPY
     Dates: start: 20080221, end: 20080311
  4. TRIFLUCAN [Concomitant]
     Indication: CANDIDIASIS
     Dates: start: 20080221

REACTIONS (5)
  - GLYCOSURIA [None]
  - NEPHROLITHIASIS [None]
  - PROTEINURIA [None]
  - RENAL FAILURE [None]
  - RENAL TUBULAR DISORDER [None]
